FAERS Safety Report 5522185-6 (Version None)
Quarter: 2007Q4

REPORT INFORMATION
  Report Type: 
  Country: None (occurrence: None)
  Receive Date: 20071120
  Receipt Date: 20071115
  Transmission Date: 20080405
  Serious: Yes (Other)
  Sender: FDA-Public Use
  Company Number: A0694785A

PATIENT
  Age: 88 Year
  Sex: Male

DRUGS (3)
  1. AVODART [Suspect]
     Indication: BENIGN PROSTATIC HYPERPLASIA
     Route: 065
  2. GLAUCOMA EYE DROPS (UNSPECIFIED) [Concomitant]
  3. MULTIPLE MEDICATIONS [Concomitant]

REACTIONS (3)
  - BLINDNESS [None]
  - CATARACT [None]
  - FLOPPY IRIS SYNDROME [None]
